FAERS Safety Report 6693918-0 (Version None)
Quarter: 2010Q2

REPORT INFORMATION
  Report Type: 
  Country: None (occurrence: None)
  Receive Date: 20100423
  Receipt Date: 20100416
  Transmission Date: 20101027
  Serious: Yes (Other)
  Sender: FDA-Public Use
  Company Number: US-BAYER-201012027BCC

PATIENT
  Age: 67 Year
  Sex: Female
  Weight: 100 kg

DRUGS (7)
  1. ALEVE [Suspect]
     Indication: ARTHRALGIA
     Dosage: TOTAL DAILY DOSE: 440 MG  UNIT DOSE: 220 MG
     Route: 048
     Dates: end: 20091101
  2. ASPIRIN [Suspect]
     Indication: ARTHRALGIA
     Dosage: TOTAL DAILY DOSE: 325 MG  UNIT DOSE: 325 MG
     Route: 048
     Dates: start: 20091101
  3. SYNTHROID [Concomitant]
     Route: 065
  4. OSTEO BI-FLEX [Concomitant]
     Route: 065
  5. CO Q10 [Concomitant]
     Route: 065
  6. LUTEIN [Concomitant]
     Route: 065
  7. VITAMIN C [Concomitant]
     Route: 065

REACTIONS (5)
  - DYSPEPSIA [None]
  - DYSPHAGIA [None]
  - HYPERSENSITIVITY [None]
  - LOSS OF CONSCIOUSNESS [None]
  - THROAT TIGHTNESS [None]
